FAERS Safety Report 9669474 (Version 1)
Quarter: 2013Q4

REPORT INFORMATION
  Report Type: Spontaneous
  Country: GB (occurrence: GB)
  Receive Date: 20131105
  Receipt Date: 20131105
  Transmission Date: 20140711
  Serious: Yes (Disabling)
  Sender: FDA-Public Use
  Company Number: GB-PFIZER INC-2013310898

PATIENT
  Sex: Male

DRUGS (2)
  1. XALATAN [Suspect]
     Indication: GLAUCOMA
     Dosage: UNK
     Route: 047
  2. TIMOPTOL [Suspect]
     Indication: GLAUCOMA
     Dosage: 0.5 %, EYE DROPS
     Route: 047

REACTIONS (1)
  - Anosmia [Not Recovered/Not Resolved]
